FAERS Safety Report 19100117 (Version 1)
Quarter: 2021Q2

REPORT INFORMATION
  Report Type: Spontaneous
  Country: SA (occurrence: SA)
  Receive Date: 20210407
  Receipt Date: 20210407
  Transmission Date: 20210717
  Serious: Yes (Death, Other)
  Sender: FDA-Public Use
  Company Number: SA-BEH-2021129961

PATIENT
  Age: 4 Year
  Sex: Male

DRUGS (3)
  1. HUMAN FACTOR VIII VWF (INN) [Suspect]
     Active Substance: HUMAN COAGULATION FACTOR VIII/VON WILLEBRAND FACTOR COMPLEX
     Dosage: 60 INTERNATIONAL UNIT, BID
     Route: 065
  2. HUMAN FACTOR VIII VWF (INN) [Suspect]
     Active Substance: HUMAN COAGULATION FACTOR VIII/VON WILLEBRAND FACTOR COMPLEX
     Indication: VON WILLEBRAND^S DISEASE
     Dosage: 60 INTERNATIONAL UNIT, QD
     Route: 065
  3. FACTOR VIIA, RECOMBINANT [Suspect]
     Active Substance: COAGULATION FACTOR VIIA RECOMBINANT HUMAN
     Indication: VON WILLEBRAND^S DISEASE
     Dosage: 90 MICROGRAM/KILOGRAM, Q3H
     Route: 065

REACTIONS (1)
  - Drug ineffective [Fatal]
